FAERS Safety Report 8100948-0 (Version None)
Quarter: 2012Q1

REPORT INFORMATION
  Report Type: 
  Country: None (occurrence: None)
  Receive Date: 20120129
  Receipt Date: 20111015
  Transmission Date: 20120608
  Serious: No
  Sender: FDA-Public Use
  Company Number: US-ABBOTT-11P-163-0865138-00

PATIENT
  Age: 54 Year
  Sex: Male

DRUGS (10)
  1. ASPIRIN [Concomitant]
     Indication: PRODUCT USED FOR UNKNOWN INDICATION
  2. ATENOLOL [Concomitant]
     Indication: BLOOD PRESSURE
     Dosage: 1/2 DAILY
  3. HUMIRA [Suspect]
     Indication: PSORIASIS
     Dates: start: 20110601
  4. FOLIC ACID [Concomitant]
     Indication: PROPHYLAXIS
  5. DIOVAN [Concomitant]
     Indication: PRODUCT USED FOR UNKNOWN INDICATION
     Dosage: DAILY
  6. CRESTOR [Concomitant]
     Indication: PRODUCT USED FOR UNKNOWN INDICATION
     Dosage: 20 1 DAILY
  7. NAPROSYN [Concomitant]
     Indication: MUSCULOSKELETAL PAIN
  8. AMLODIPINE [Concomitant]
     Indication: PRODUCT USED FOR UNKNOWN INDICATION
     Dosage: DAILY
  9. FOLIC ACID [Concomitant]
     Indication: LIVER DISORDER
  10. RAMIPRIL [Concomitant]
     Indication: PRODUCT USED FOR UNKNOWN INDICATION
     Dosage: DAILY

REACTIONS (4)
  - JOINT INJURY [None]
  - FALL [None]
  - PAIN [None]
  - PSORIASIS [None]
